FAERS Safety Report 8142306-9 (Version None)
Quarter: 2012Q1

REPORT INFORMATION
  Report Type: 
  Country: None (occurrence: None)
  Receive Date: 20120103
  Receipt Date: 20110902
  Transmission Date: 20120608
  Serious: No
  Sender: FDA-Public Use
  Company Number: AE-2011-001252

PATIENT
  Age: 56 Year
  Sex: Male
  Weight: 89.3586 kg

DRUGS (5)
  1. INCIVEK [Suspect]
     Dosage: 2250 MG (750 MG,1 IN 8 HR),ORAL
     Route: 048
     Dates: start: 20110829
  2. RIBAPAK (RIBAVIRIN) [Concomitant]
  3. LUNESTA [Concomitant]
  4. ATIVAN [Concomitant]
  5. PEGASYS [Concomitant]

REACTIONS (1)
  - RASH PRURITIC [None]
